FAERS Safety Report 14525797 (Version 2)
Quarter: 2018Q2

REPORT INFORMATION
  Report Type: Spontaneous
  Country: US (occurrence: US)
  Receive Date: 20180213
  Receipt Date: 20180531
  Transmission Date: 20180711
  Serious: Yes (Life-Threatening, Hospitalization)
  Sender: FDA-Public Use
  Company Number: US-JNJFOC-20180213804

PATIENT
  Age: 49 Year
  Sex: Female

DRUGS (39)
  1. RISPERDAL CONSTA [Suspect]
     Active Substance: RISPERIDONE
     Indication: SCHIZOAFFECTIVE DISORDER BIPOLAR TYPE
     Route: 030
  2. VALPROIC ACID. [Suspect]
     Active Substance: VALPROIC ACID
     Indication: SCHIZOAFFECTIVE DISORDER BIPOLAR TYPE
     Route: 065
  3. VALPROIC ACID. [Suspect]
     Active Substance: VALPROIC ACID
     Indication: SCHIZOAFFECTIVE DISORDER BIPOLAR TYPE
     Route: 065
  4. CLOZAPINE. [Suspect]
     Active Substance: CLOZAPINE
     Indication: SCHIZOAFFECTIVE DISORDER BIPOLAR TYPE
     Route: 065
  5. CHLORPROMAZINE. [Concomitant]
     Active Substance: CHLORPROMAZINE
     Route: 065
  6. DIPHENHYDRAMINE. [Concomitant]
     Active Substance: DIPHENHYDRAMINE
     Indication: SCHIZOAFFECTIVE DISORDER BIPOLAR TYPE
     Route: 042
  7. SERTRALINE [Concomitant]
     Active Substance: SERTRALINE HYDROCHLORIDE
     Route: 065
  8. HALOPERIDOL. [Suspect]
     Active Substance: HALOPERIDOL
     Indication: SCHIZOAFFECTIVE DISORDER BIPOLAR TYPE
     Route: 042
  9. CHLORPROMAZINE. [Concomitant]
     Active Substance: CHLORPROMAZINE
     Route: 065
  10. DIPHENHYDRAMINE. [Concomitant]
     Active Substance: DIPHENHYDRAMINE
     Indication: SCHIZOAFFECTIVE DISORDER BIPOLAR TYPE
     Route: 042
  11. BENZTROPINE. [Concomitant]
     Active Substance: BENZTROPINE
     Indication: SCHIZOAFFECTIVE DISORDER BIPOLAR TYPE
     Route: 065
  12. LORAZEPAM. [Concomitant]
     Active Substance: LORAZEPAM
     Indication: AGGRESSION
     Route: 042
  13. FLUPHENAZINE [Suspect]
     Active Substance: FLUPHENAZINE
     Indication: SCHIZOAFFECTIVE DISORDER BIPOLAR TYPE
     Route: 065
  14. CLOZAPINE. [Suspect]
     Active Substance: CLOZAPINE
     Indication: SCHIZOAFFECTIVE DISORDER BIPOLAR TYPE
     Route: 065
  15. CLOZAPINE. [Suspect]
     Active Substance: CLOZAPINE
     Indication: SCHIZOAFFECTIVE DISORDER BIPOLAR TYPE
     Route: 065
  16. OLANZAPINE. [Suspect]
     Active Substance: OLANZAPINE
     Indication: SCHIZOAFFECTIVE DISORDER BIPOLAR TYPE
     Route: 030
  17. CLOZAPINE. [Suspect]
     Active Substance: CLOZAPINE
     Indication: SCHIZOAFFECTIVE DISORDER BIPOLAR TYPE
     Route: 065
  18. CLOZAPINE. [Suspect]
     Active Substance: CLOZAPINE
     Indication: SCHIZOAFFECTIVE DISORDER BIPOLAR TYPE
     Route: 065
  19. DIPHENHYDRAMINE. [Concomitant]
     Active Substance: DIPHENHYDRAMINE
     Indication: SCHIZOAFFECTIVE DISORDER BIPOLAR TYPE
     Route: 042
  20. DIPHENHYDRAMINE. [Concomitant]
     Active Substance: DIPHENHYDRAMINE
     Indication: SCHIZOAFFECTIVE DISORDER BIPOLAR TYPE
     Route: 042
  21. BENZTROPINE. [Concomitant]
     Active Substance: BENZTROPINE
     Indication: SCHIZOAFFECTIVE DISORDER BIPOLAR TYPE
     Route: 065
  22. HALOPERIDOL. [Suspect]
     Active Substance: HALOPERIDOL
     Indication: SCHIZOAFFECTIVE DISORDER BIPOLAR TYPE
     Route: 042
  23. RISPERIDONE. [Suspect]
     Active Substance: RISPERIDONE
     Indication: SCHIZOAFFECTIVE DISORDER BIPOLAR TYPE
     Route: 065
  24. FLUPHENAZINE [Suspect]
     Active Substance: FLUPHENAZINE
     Indication: SCHIZOAFFECTIVE DISORDER BIPOLAR TYPE
     Route: 065
  25. CLOZAPINE. [Suspect]
     Active Substance: CLOZAPINE
     Indication: SCHIZOAFFECTIVE DISORDER BIPOLAR TYPE
     Route: 065
  26. RISPERIDONE. [Suspect]
     Active Substance: RISPERIDONE
     Indication: SCHIZOAFFECTIVE DISORDER BIPOLAR TYPE
     Route: 065
  27. OLANZAPINE. [Suspect]
     Active Substance: OLANZAPINE
     Indication: SCHIZOAFFECTIVE DISORDER BIPOLAR TYPE
     Route: 030
  28. LORAZEPAM. [Concomitant]
     Active Substance: LORAZEPAM
     Indication: AGGRESSION
     Route: 042
  29. HALOPERIDOL. [Suspect]
     Active Substance: HALOPERIDOL
     Indication: SCHIZOAFFECTIVE DISORDER BIPOLAR TYPE
     Route: 042
  30. HALOPERIDOL. [Suspect]
     Active Substance: HALOPERIDOL
     Indication: SCHIZOAFFECTIVE DISORDER BIPOLAR TYPE
     Route: 042
  31. HALOPERIDOL. [Suspect]
     Active Substance: HALOPERIDOL
     Indication: SCHIZOAFFECTIVE DISORDER BIPOLAR TYPE
     Route: 042
  32. VALPROIC ACID. [Suspect]
     Active Substance: VALPROIC ACID
     Indication: SCHIZOAFFECTIVE DISORDER BIPOLAR TYPE
     Route: 065
  33. CLOZAPINE. [Suspect]
     Active Substance: CLOZAPINE
     Indication: SCHIZOAFFECTIVE DISORDER BIPOLAR TYPE
     Route: 065
  34. LORAZEPAM. [Concomitant]
     Active Substance: LORAZEPAM
     Indication: AGGRESSION
     Route: 042
  35. LORAZEPAM. [Concomitant]
     Active Substance: LORAZEPAM
     Indication: AGGRESSION
     Route: 042
  36. HALOPERIDOL. [Suspect]
     Active Substance: HALOPERIDOL
     Indication: SCHIZOAFFECTIVE DISORDER BIPOLAR TYPE
     Route: 042
  37. RISPERIDONE. [Suspect]
     Active Substance: RISPERIDONE
     Indication: SCHIZOAFFECTIVE DISORDER BIPOLAR TYPE
     Route: 065
  38. CLOZAPINE. [Suspect]
     Active Substance: CLOZAPINE
     Indication: SCHIZOAFFECTIVE DISORDER BIPOLAR TYPE
     Route: 065
  39. LORAZEPAM. [Concomitant]
     Active Substance: LORAZEPAM
     Indication: AGGRESSION
     Route: 042

REACTIONS (9)
  - Cardiac arrest [Recovered/Resolved]
  - Pneumonia aspiration [Recovering/Resolving]
  - Electrocardiogram QT prolonged [Recovered/Resolved]
  - Sepsis [Recovering/Resolving]
  - Incorrect route of drug administration [Unknown]
  - Metabolic disorder [Recovered/Resolved]
  - Torsade de pointes [Recovered/Resolved]
  - Off label use [Unknown]
  - Incorrect dose administered [Unknown]
